FAERS Safety Report 5247940-1 (Version None)
Quarter: 2007Q1

REPORT INFORMATION
  Report Type: 
  Country: None (occurrence: None)
  Receive Date: 20070220
  Receipt Date: 20070206
  Transmission Date: 20070707
  Serious: Yes (Other)
  Sender: FDA-Public Use
  Company Number: 2006BI016994

PATIENT
  Age: 62 Year
  Sex: Female

DRUGS (18)
  1. AVONEX [Suspect]
     Indication: MULTIPLE SCLEROSIS
     Dosage: 30 UG; QW; IM
     Route: 030
     Dates: start: 19970515
  2. AVONEX [Suspect]
     Indication: MULTIPLE SCLEROSIS
     Dosage: 30 UG; QW; IM
     Route: 030
  3. LORAZEPAM [Concomitant]
  4. PROZAC [Concomitant]
  5. TEMAZEPAM [Concomitant]
  6. SYNTHROID [Concomitant]
  7. FLONASE [Concomitant]
  8. ALLEGRA [Concomitant]
  9. TOPROL-XL [Concomitant]
  10. FUROSEMIDE [Concomitant]
  11. CALCIUM [Concomitant]
  12. VITAMIN D [Concomitant]
  13. ENALAPRIL MALEATE [Concomitant]
  14. ASPIRIN [Concomitant]
  15. LOPID [Concomitant]
  16. NEXIUM [Concomitant]
  17. ZETIA [Concomitant]
  18. BENTYL [Concomitant]

REACTIONS (3)
  - HEADACHE [None]
  - MYOCARDIAL INFARCTION [None]
  - PARAESTHESIA [None]
